FAERS Safety Report 8450877-8 (Version None)
Quarter: 2012Q2

REPORT INFORMATION
  Report Type: 
  Country: None (occurrence: None)
  Receive Date: 20120615
  Receipt Date: 20120615
  Transmission Date: 20120825
  Serious: Yes (Hospitalization)
  Sender: FDA-Public Use
  Company Number: None

PATIENT
  Age: 76 Year
  Sex: Male
  Weight: 89.1 kg

DRUGS (1)
  1. DONEPEZIL HCL [Suspect]
     Dosage: MG EVERY DAY PO
     Route: 048
     Dates: start: 20120309, end: 20120510

REACTIONS (1)
  - DIARRHOEA [None]
